FAERS Safety Report 23821961 (Version 2)
Quarter: 2024Q3

REPORT INFORMATION
  Report Type: Spontaneous
  Country: US (occurrence: US)
  Receive Date: 20240506
  Receipt Date: 20240813
  Transmission Date: 20241016
  Serious: Yes (Hospitalization)
  Sender: JOHNSON AND JOHNSON
  Company Number: US-JNJFOC-20240479734

PATIENT
  Age: 80 Year
  Sex: Female

DRUGS (2)
  1. RYBREVANT [Suspect]
     Active Substance: AMIVANTAMAB-VMJW
     Indication: Chemotherapy
     Route: 042
  2. PEMETREXED [Suspect]
     Active Substance: PEMETREXED
     Indication: Product used for unknown indication
     Route: 065

REACTIONS (4)
  - Large intestinal obstruction [Recovering/Resolving]
  - Constipation [Recovering/Resolving]
  - Skin reaction [Recovering/Resolving]
  - Lip swelling [Recovering/Resolving]
